FAERS Safety Report 11512435 (Version 1)
Quarter: 2015Q3

REPORT INFORMATION
  Report Type: Spontaneous
  Country: US (occurrence: US)
  Receive Date: 20150916
  Receipt Date: 20150916
  Transmission Date: 20151125
  Serious: No
  Sender: FDA-Public Use
  Company Number: US-GLENMARK PHARMACEUTICALS INC, USA.-2014GMK011029

PATIENT
  Age: 40 Year
  Sex: Female

DRUGS (3)
  1. ARMOUR THYROID [Concomitant]
     Active Substance: THYROID, PORCINE\THYROID, UNSPECIFIED
     Dosage: 30 MG, QD
     Route: 048
  2. LUPRON DEPOT-PED [Suspect]
     Active Substance: LEUPROLIDE ACETATE
     Dosage: 11.25 MG, EVERY 3 MONTHS
     Dates: start: 20140619, end: 20140822
  3. NORETHINDRONE ACETATE TABLETS [Suspect]
     Active Substance: NORETHINDRONE ACETATE
     Dosage: 5 MG, QD
     Route: 048
     Dates: start: 20140621

REACTIONS (12)
  - Influenza like illness [Not Recovered/Not Resolved]
  - Myalgia [Not Recovered/Not Resolved]
  - Metrorrhagia [Not Recovered/Not Resolved]
  - Rash [Not Recovered/Not Resolved]
  - Pelvic pain [Not Recovered/Not Resolved]
  - Muscle spasms [Not Recovered/Not Resolved]
  - Fatigue [Not Recovered/Not Resolved]
  - Hot flush [Not Recovered/Not Resolved]
  - Arthralgia [Not Recovered/Not Resolved]
  - Chills [Not Recovered/Not Resolved]
  - Pyrexia [Not Recovered/Not Resolved]
  - Condition aggravated [Not Recovered/Not Resolved]

NARRATIVE: CASE EVENT DATE: 20140626
